FAERS Safety Report 24882137 (Version 1)
Quarter: 2025Q1

REPORT INFORMATION
  Report Type: Other
  Country: US (occurrence: US)
  Receive Date: 20250124
  Receipt Date: 20250124
  Transmission Date: 20250409
  Serious: Yes (Hospitalization)
  Sender: ANI
  Company Number: US-ANIPHARMA-015460

PATIENT
  Age: 42 Year
  Sex: Female

DRUGS (2)
  1. LACTULOSE [Suspect]
     Active Substance: LACTULOSE
     Indication: Myelopathy
  2. RIFAXIMIN [Concomitant]
     Active Substance: RIFAXIMIN
     Indication: Myelopathy

REACTIONS (1)
  - Treatment noncompliance [Unknown]
